FAERS Safety Report 5128224-9 (Version None)
Quarter: 2006Q4

REPORT INFORMATION
  Report Type: 
  Country: None (occurrence: None)
  Receive Date: 20061011
  Receipt Date: 20060928
  Transmission Date: 20070319
  Serious: Yes (Other)
  Sender: FDA-Public Use
  Company Number: 2006118927

PATIENT
  Age: 36 Year
  Sex: Female

DRUGS (3)
  1. VFEND [Suspect]
     Indication: CANDIDIASIS
     Dosage: 800 MG
  2. CYCLOSPORINE [Suspect]
  3. AMPHOTERICIN B [Concomitant]

REACTIONS (2)
  - CENTRAL NERVOUS SYSTEM LESION [None]
  - THERAPEUTIC AGENT TOXICITY [None]
